FAERS Safety Report 20859431 (Version 1)
Quarter: 2022Q2

REPORT INFORMATION
  Report Type: Other
  Country: JP (occurrence: JP)
  Receive Date: 20220523
  Receipt Date: 20220523
  Transmission Date: 20220721
  Serious: Yes (Other)
  Sender: FDA-Public Use
  Company Number: JP-CHUGAI-2022017856

PATIENT
  Age: 67 Year
  Sex: Female
  Weight: 36.8 kg

DRUGS (10)
  1. ATEZOLIZUMAB [Suspect]
     Active Substance: ATEZOLIZUMAB
     Indication: Lung adenocarcinoma
     Dosage: 1200 MILLIGRAM, ONCE/4WEEKS
     Route: 041
     Dates: start: 20210410, end: 20210804
  2. ATEZOLIZUMAB [Suspect]
     Active Substance: ATEZOLIZUMAB
     Dosage: 1200 MILLIGRAM, ONCE/3WEEKS?ON 27/OCT/2021, THE PATIENT RECEIVED MOST RECENT DOSE OF ATEZOLIZUMAB.
     Route: 041
     Dates: start: 20210825
  3. BEVACIZUMAB [Suspect]
     Active Substance: BEVACIZUMAB
     Indication: Lung adenocarcinoma
     Dosage: 550 MILLIGRAM, QD
     Route: 041
     Dates: start: 20210410, end: 20210410
  4. BEVACIZUMAB [Suspect]
     Active Substance: BEVACIZUMAB
     Dosage: 530 MILLIGRAM, ONCE/4WEEKS
     Route: 041
     Dates: start: 20210512, end: 20210804
  5. BEVACIZUMAB [Suspect]
     Active Substance: BEVACIZUMAB
     Dosage: 530 MILLIGRAM, ONCE/3WEEKS?ON 27/OCT/2021, THE PATIENT RECEIVED MOST RECENT DOSE OF BEVACIZUMAB.
     Route: 041
     Dates: start: 20210825
  6. CARBOPLATIN [Suspect]
     Active Substance: CARBOPLATIN
     Indication: Lung adenocarcinoma
     Dosage: 360 MILLIGRAM, QD
     Route: 041
     Dates: start: 20210410, end: 20210410
  7. CARBOPLATIN [Suspect]
     Active Substance: CARBOPLATIN
     Dosage: 290 MILLIGRAM, ONCE/4WEEKS
     Route: 041
     Dates: start: 20210512, end: 20210610
  8. CARBOPLATIN [Suspect]
     Active Substance: CARBOPLATIN
     Dosage: 280 MILLIGRAM, QD?ON 08/JUL/2021, THE PATIENT RECEIVED MOST RECENT DOSE OF CARBOPLATIN.
     Route: 041
     Dates: start: 20210708
  9. PACLITAXEL [Suspect]
     Active Substance: PACLITAXEL
     Indication: Lung adenocarcinoma
     Dosage: 220 MILLIGRAM, ONCE/4WEEKS?ON 08/JUL/2021, THE PATIENT RECEIVED MOST RECENT DOSE OF PACLITAXEL.
     Route: 041
     Dates: start: 20210410
  10. DEXAMETHASONE SODIUM PHOSPHATE [Concomitant]
     Active Substance: DEXAMETHASONE SODIUM PHOSPHATE
     Dosage: UNK MILLIGRAM
     Route: 042

REACTIONS (4)
  - Erythema multiforme [Recovered/Resolved]
  - Neutrophil count decreased [Recovered/Resolved]
  - Blood creatinine increased [Recovered/Resolved]
  - Nausea [Recovered/Resolved]

NARRATIVE: CASE EVENT DATE: 20210412
